FAERS Safety Report 9512979 (Version 1)
Quarter: 2013Q3

REPORT INFORMATION
  Report Type: Spontaneous
  Country: US (occurrence: None)
  Receive Date: 20130906
  Receipt Date: 20130906
  Transmission Date: 20140515
  Serious: Yes (Other)
  Sender: FDA-Public Use
  Company Number: MC201300418

PATIENT
  Age: 71 Year
  Sex: Female

DRUGS (1)
  1. ANGIOMAX, ANGIOX (BIVALIRUDIN) INJECTION [Suspect]
     Route: 040

REACTIONS (3)
  - Coronary artery perforation [None]
  - Haemorrhage [None]
  - Thrombosis [None]
